FAERS Safety Report 9442108 (Version 1)
Quarter: 2013Q3

REPORT INFORMATION
  Report Type: Report from Study
  Country: BR (occurrence: BR)
  Receive Date: 20130806
  Receipt Date: 20130806
  Transmission Date: 20140515
  Serious: Yes (Hospitalization, Other)
  Sender: FDA-Public Use
  Company Number: PHHY2013BR083689

PATIENT
  Age: 53 Year
  Sex: Female

DRUGS (1)
  1. DIOVAN HCT [Suspect]
     Indication: CARDIAC DISORDER
     Dosage: 1 DF (160/12.5MG) DAILY
     Route: 048
     Dates: start: 2006

REACTIONS (3)
  - Cerebrovascular accident [Recovered/Resolved]
  - Infarction [Recovered/Resolved]
  - Blindness [Not Recovered/Not Resolved]
